FAERS Safety Report 17049190 (Version 2)
Quarter: 2019Q4

REPORT INFORMATION
  Report Type: Report from Study
  Country: IT (occurrence: IT)
  Receive Date: 20191119
  Receipt Date: 20191128
  Transmission Date: 20200122
  Serious: Yes (Hospitalization, Other)
  Sender: FDA-Public Use
  Company Number: PHHY2017IT193270

PATIENT
  Age: 49 Year
  Sex: Male

DRUGS (4)
  1. OCUSYNT [Concomitant]
     Indication: PRODUCT USED FOR UNKNOWN INDICATION
     Dosage: 1 DRP, BID
     Route: 047
  2. OMEPRAZOLE. [Concomitant]
     Active Substance: OMEPRAZOLE
     Indication: PRODUCT USED FOR UNKNOWN INDICATION
     Dosage: 20 MG, BID
     Route: 065
  3. DIBASE [Concomitant]
     Active Substance: CHOLECALCIFEROL
     Indication: SUPPLEMENTATION THERAPY
     Dosage: 25000 IU, QMO
     Route: 048
     Dates: start: 201704
  4. GILENYA [Suspect]
     Active Substance: FINGOLIMOD HYDROCHLORIDE
     Indication: RELAPSING-REMITTING MULTIPLE SCLEROSIS
     Dosage: 0.5 MG, QD
     Route: 048
     Dates: start: 20130717, end: 20190903

REACTIONS (13)
  - Hypoaesthesia [Recovering/Resolving]
  - Angina pectoris [Unknown]
  - Fatigue [Unknown]
  - Urine output decreased [Unknown]
  - Pallor [Unknown]
  - Acute coronary syndrome [Recovered/Resolved]
  - Multiple sclerosis relapse [Not Recovered/Not Resolved]
  - Choking [Unknown]
  - Duodenal ulcer haemorrhage [Recovered/Resolved]
  - Normocytic anaemia [Recovered/Resolved]
  - Acute myocardial infarction [Recovered/Resolved]
  - Dyspnoea [Unknown]
  - Paresis [Recovering/Resolving]

NARRATIVE: CASE EVENT DATE: 20171025
